FAERS Safety Report 8267751-2 (Version None)
Quarter: 2012Q2

REPORT INFORMATION
  Report Type: 
  Country: None (occurrence: None)
  Receive Date: 20120409
  Receipt Date: 20120326
  Transmission Date: 20120825
  Serious: No
  Sender: FDA-Public Use
  Company Number: US-BAYER-2012-029579

PATIENT
  Age: 24 Year
  Sex: Female

DRUGS (1)
  1. SAFYRAL [Suspect]
     Dosage: UNK
     Dates: start: 20120304

REACTIONS (2)
  - PELVIC PAIN [None]
  - NAUSEA [None]
